FAERS Safety Report 23350673 (Version 5)
Quarter: 2024Q2

REPORT INFORMATION
  Report Type: Spontaneous
  Country: PR (occurrence: PR)
  Receive Date: 20231229
  Receipt Date: 20240422
  Transmission Date: 20240716
  Serious: No
  Sender: FDA-Public Use
  Company Number: PR-PFIZER INC-PV202300198670

PATIENT
  Age: 15 Year
  Sex: Male

DRUGS (2)
  1. GENOTROPIN [Suspect]
     Active Substance: SOMATROPIN
     Dosage: 2.2 MG PER DAY, 6 DAYS PER WEEK
  2. GENOTROPIN [Suspect]
     Active Substance: SOMATROPIN
     Dosage: 1.2 MG (6 DAYS/WEEK)

REACTIONS (4)
  - Drug dose omission by device [Unknown]
  - Device information output issue [Unknown]
  - Device mechanical issue [Unknown]
  - Device malfunction [Unknown]
